FAERS Safety Report 10407021 (Version 1)
Quarter: 2014Q3

REPORT INFORMATION
  Report Type: Spontaneous
  Country: US (occurrence: US)
  Receive Date: 20140825
  Receipt Date: 20140825
  Transmission Date: 20150326
  Serious: No
  Sender: FDA-Public Use
  Company Number: US-009507513-1408USA013422

PATIENT
  Sex: Male

DRUGS (1)
  1. BAIN DE SOLEIL ORANGE GELLE SPF 4 [Suspect]
     Active Substance: OCTINOXATE\OCTISALATE
     Indication: PRODUCT USED FOR UNKNOWN INDICATION
     Dosage: UNK, UNKNOWN
     Route: 061

REACTIONS (4)
  - Pruritus [Unknown]
  - Papule [Unknown]
  - Erythema [Unknown]
  - Rash [Unknown]
